FAERS Safety Report 24160641 (Version 1)
Quarter: 2024Q3

REPORT INFORMATION
  Report Type: Spontaneous
  Country: NL (occurrence: NL)
  Receive Date: 20240801
  Receipt Date: 20240801
  Transmission Date: 20241017
  Serious: Yes (Other)
  Sender: ALKEM
  Company Number: NL-ALKEM LABORATORIES LIMITED-NL-ALKEM-2024-12608

PATIENT
  Age: 75 Year
  Sex: Male

DRUGS (1)
  1. ITRACONAZOLE [Suspect]
     Active Substance: ITRACONAZOLE
     Indication: Bronchopulmonary aspergillosis
     Dosage: 200 MILLIGRAM, BID
     Route: 065

REACTIONS (1)
  - Hepatotoxicity [Recovered/Resolved]
